FAERS Safety Report 26052523 (Version 1)
Quarter: 2025Q4

REPORT INFORMATION
  Report Type: Spontaneous
  Country: US (occurrence: US)
  Receive Date: 20251117
  Receipt Date: 20251117
  Transmission Date: 20260118
  Serious: Yes (Hospitalization)
  Sender: HIKMA
  Company Number: US-HIKMA PHARMACEUTICALS USA INC.-US-H14001-25-11962

PATIENT
  Age: 49 Year
  Sex: Male
  Weight: 89.8 kg

DRUGS (9)
  1. CLONAZEPAM [Suspect]
     Active Substance: CLONAZEPAM
     Indication: Product used for unknown indication
     Dosage: UNKNOWN
     Route: 065
  2. LUMRYZ [Suspect]
     Active Substance: SODIUM OXYBATE
     Indication: Cataplexy
     Dosage: 6 MG, QD NIGHTLY AT BEDTIME (EXTENDED RELEASE)
     Route: 048
  3. LUMRYZ [Suspect]
     Active Substance: SODIUM OXYBATE
     Indication: Narcolepsy
     Dosage: 4.5 GRAM, QD, NIGHTLY AT BEDTIME (EXTENDED RELEASE)
     Route: 048
     Dates: start: 20240618
  4. MORPHINE SULFATE [Suspect]
     Active Substance: MORPHINE SULFATE
     Indication: Product used for unknown indication
     Dosage: UNKNOWN
     Route: 065
  5. OXYCODONE HYDROCHLORIDE [Suspect]
     Active Substance: OXYCODONE HYDROCHLORIDE
     Indication: Product used for unknown indication
     Dosage: UNKNOWN
     Route: 065
  6. HUMIRA [Concomitant]
     Active Substance: ADALIMUMAB
     Indication: Product used for unknown indication
     Dosage: UNKNOWN
     Route: 065
  7. NEBIVOLOL [Concomitant]
     Active Substance: NEBIVOLOL
     Indication: Product used for unknown indication
     Dosage: UNKNOWN
     Route: 065
  8. SUNOSI [Concomitant]
     Active Substance: SOLRIAMFETOL
     Indication: Product used for unknown indication
     Dosage: UNKNOWN
     Route: 065
  9. VYVANSE [Concomitant]
     Active Substance: LISDEXAMFETAMINE DIMESYLATE
     Indication: Product used for unknown indication
     Dosage: UNKNOWN
     Route: 065

REACTIONS (7)
  - Hospitalisation [Unknown]
  - Initial insomnia [Recovering/Resolving]
  - Hunger [Not Recovered/Not Resolved]
  - Fatigue [Not Recovered/Not Resolved]
  - Drug interaction [Unknown]
  - Nausea [Recovered/Resolved]
  - Wrong technique in product usage process [Recovered/Resolved]

NARRATIVE: CASE EVENT DATE: 20240601
